FAERS Safety Report 5252733-5 (Version None)
Quarter: 2007Q1

REPORT INFORMATION
  Report Type: 
  Country: None (occurrence: None)
  Receive Date: 20070301
  Receipt Date: 20061120
  Transmission Date: 20070707
  Serious: No
  Sender: FDA-Public Use
  Company Number: US-GLAXOSMITHKLINE-A0627999A

PATIENT

DRUGS (1)
  1. LAMICTAL [Suspect]

REACTIONS (1)
  - BALANCE DISORDER [None]
